FAERS Safety Report 5692649-3 (Version None)
Quarter: 2008Q2

REPORT INFORMATION
  Report Type: 
  Country: None (occurrence: None)
  Receive Date: 20080401
  Receipt Date: 20080319
  Transmission Date: 20081010
  Serious: Yes (Hospitalization)
  Sender: FDA-Public Use
  Company Number: 2008BI003046

PATIENT
  Age: 67 Year
  Sex: Female
  Weight: 88.4514 kg

DRUGS (13)
  1. AVONEX [Suspect]
     Indication: MULTIPLE SCLEROSIS
     Dosage: 30 UG; QW; IM
     Route: 030
     Dates: start: 19960901
  2. NORCO [Concomitant]
  3. LIPITOR [Concomitant]
  4. BUPROPION HCL [Concomitant]
  5. COLACE [Concomitant]
  6. FERROUS SULFATE TAB [Concomitant]
  7. NEURONTIN [Concomitant]
  8. PROVIGIL [Concomitant]
  9. MULTI-VITAMIN [Concomitant]
  10. CELEBREX [Concomitant]
  11. PIROXICAM [Concomitant]
  12. COUMADIN [Concomitant]
  13. HYDROCHLOROTHIAZIDE [Concomitant]

REACTIONS (13)
  - ARTHRALGIA [None]
  - CONFUSIONAL STATE [None]
  - EROSIVE OESOPHAGITIS [None]
  - GASTRIC ULCER [None]
  - GASTROINTESTINAL HAEMORRHAGE [None]
  - HIATUS HERNIA [None]
  - HYPOTENSION [None]
  - IMPAIRED HEALING [None]
  - OSTEOARTHRITIS [None]
  - PULSE ABSENT [None]
  - RESPIRATORY ARREST [None]
  - SYNCOPE [None]
  - UPPER GASTROINTESTINAL HAEMORRHAGE [None]
